FAERS Safety Report 7528903-X (Version None)
Quarter: 2011Q2

REPORT INFORMATION
  Report Type: 
  Country: None (occurrence: None)
  Receive Date: 20110607
  Receipt Date: 20110524
  Transmission Date: 20111010
  Serious: Yes (Other)
  Sender: FDA-Public Use
  Company Number: PHHY2011US45742

PATIENT
  Age: 66 Year
  Sex: Female

DRUGS (2)
  1. ZOMETA [Suspect]
     Dosage: 4 MG,ONCE IN 3 WEEKS
  2. ZOMETA [Suspect]
     Dosage: 4 MG, ONCE IN 4 WEEKS

REACTIONS (4)
  - METASTASES TO LUNG [None]
  - METASTASES TO LIVER [None]
  - OSTEONECROSIS OF JAW [None]
  - METASTASES TO BONE [None]
